FAERS Safety Report 15677417 (Version 2)
Quarter: 2019Q1

REPORT INFORMATION
  Report Type: Spontaneous
  Country: GR (occurrence: GR)
  Receive Date: 20181130
  Receipt Date: 20190114
  Transmission Date: 20190417
  Serious: Yes (Death, Other)
  Sender: FDA-Public Use
  Company Number: GR-JNJFOC-20181132691

PATIENT
  Age: 62 Year
  Sex: Female

DRUGS (2)
  1. VORICONAZOLE. [Interacting]
     Active Substance: VORICONAZOLE
     Indication: DIFFUSE LARGE B-CELL LYMPHOMA
     Route: 065
  2. IBRUTINIB [Suspect]
     Active Substance: IBRUTINIB
     Indication: DIFFUSE LARGE B-CELL LYMPHOMA
     Dosage: FOR 3 MONTHS
     Route: 048

REACTIONS (9)
  - Respiratory tract infection [Fatal]
  - Lymphadenopathy [Unknown]
  - Drug interaction [Unknown]
  - Vomiting [Unknown]
  - Off label use [Unknown]
  - Leukopenia [Unknown]
  - Product use in unapproved indication [Unknown]
  - Tuberculosis [Unknown]
  - Diarrhoea [Unknown]
